FAERS Safety Report 9219998 (Version 1)
Quarter: 2013Q1

REPORT INFORMATION
  Report Type: Spontaneous
  Country: US (occurrence: None)
  Receive Date: 20120830
  Receipt Date: 20120830
  Transmission Date: 20140127
  Serious: Yes (Other)
  Sender: FDA-Public Use
  Company Number: US008554

PATIENT
  Age: 34 Year
  Sex: Female
  Weight: 80 kg

DRUGS (3)
  1. GABITRIL [Suspect]
     Indication: PARTIAL SEIZURES
     Dosage: 20 MG (8 MG, EACH AM) ORAL
     Route: 048
     Dates: start: 19980729, end: 199903
  2. TEGRETOL [Concomitant]
  3. MEBARAL [Concomitant]

REACTIONS (1)
  - Convulsion [None]
